FAERS Safety Report 4727535-6 (Version None)
Quarter: 2005Q3

REPORT INFORMATION
  Report Type: 
  Country: None (occurrence: None)
  Receive Date: 20050727
  Receipt Date: 20050727
  Transmission Date: 20060218
  Serious: Yes (Hospitalization)
  Sender: FDA-Public Use
  Company Number: None

PATIENT
  Age: 45 Year
  Sex: Male

DRUGS (1)
  1. HALOPERIDOL [Suspect]
     Indication: AGITATION
     Dosage: 5MG ONCE INTRAMUSCULAR
     Route: 030

REACTIONS (5)
  - HYPOTENSION [None]
  - HYPOXIA [None]
  - LETHARGY [None]
  - OXYGEN SATURATION DECREASED [None]
  - POISONING [None]
